FAERS Safety Report 5749472-0 (Version None)
Quarter: 2008Q2

REPORT INFORMATION
  Report Type: 
  Country: None (occurrence: None)
  Receive Date: 20080527
  Receipt Date: 20080519
  Transmission Date: 20081010
  Serious: Yes (Other)
  Sender: FDA-Public Use
  Company Number: A0729509A

PATIENT
  Age: 2 Year
  Sex: Female
  Weight: 13 kg

DRUGS (1)
  1. CEFUROXIME [Suspect]
     Dosage: 3.5ML TWICE PER DAY
     Dates: start: 20080509

REACTIONS (2)
  - AGGRESSION [None]
  - DIARRHOEA [None]
